FAERS Safety Report 5757962-X (Version None)
Quarter: 2008Q2

REPORT INFORMATION
  Report Type: 
  Country: None (occurrence: None)
  Receive Date: 20080530
  Receipt Date: 20080515
  Transmission Date: 20081010
  Serious: Yes (Hospitalization)
  Sender: FDA-Public Use
  Company Number: 8029296

PATIENT
  Age: 33 Year
  Sex: Female
  Weight: 75 kg

DRUGS (8)
  1. KEPPRA [Suspect]
     Indication: EPILEPSY
     Dosage: 1500 MG /D PO
     Route: 048
  2. KEPPRA [Suspect]
     Indication: EPILEPSY
     Dosage: 750 MG 2/D PO
     Route: 048
  3. FLEXERIL [Concomitant]
  4. VITAMIN TAB [Concomitant]
  5. FOLIC ACID [Concomitant]
  6. COLACE [Concomitant]
  7. LOVENOX [Concomitant]
  8. TEGRETOL [Concomitant]

REACTIONS (5)
  - COMPLEX PARTIAL SEIZURES [None]
  - CONDITION AGGRAVATED [None]
  - DRUG EXPOSURE DURING PREGNANCY [None]
  - SICKLE CELL ANAEMIA [None]
  - THROMBOSIS [None]
